FAERS Safety Report 8133759-0 (Version None)
Quarter: 2012Q1

REPORT INFORMATION
  Report Type: 
  Country: None (occurrence: None)
  Receive Date: 20120213
  Receipt Date: 20120213
  Transmission Date: 20120608
  Serious: No
  Sender: FDA-Public Use
  Company Number: None

PATIENT
  Age: 16 Year
  Sex: Male

DRUGS (1)
  1. UP+UP 32CT SLEEP AID LIQUGEL [Suspect]

REACTIONS (3)
  - INCORRECT DOSE ADMINISTERED [None]
  - AMNESIA [None]
  - TRANCE [None]
